FAERS Safety Report 4595412-X (Version None)
Quarter: 2005Q1

REPORT INFORMATION
  Report Type: 
  Country: None (occurrence: None)
  Receive Date: 20050224
  Receipt Date: 20050208
  Transmission Date: 20050727
  Serious: No
  Sender: FDA-Public Use
  Company Number: USA040671065

PATIENT
  Age: 63 Year
  Sex: Female

DRUGS (3)
  1. EVISTA [Suspect]
     Indication: OSTEOPOROSIS
     Dosage: 60 MG DAY
     Dates: start: 20010101
  2. CALCIUM GLUCONATE [Concomitant]
  3. LIPITOR [Concomitant]

REACTIONS (8)
  - BLOOD CALCIUM ABNORMAL [None]
  - BODY HEIGHT DECREASED [None]
  - BONE DISORDER [None]
  - CHRONIC OBSTRUCTIVE PULMONARY DISEASE [None]
  - DIFFICULTY IN WALKING [None]
  - MUSCLE SPASMS [None]
  - NASOPHARYNGITIS [None]
  - SLEEP DISORDER [None]
